FAERS Safety Report 10292966 (Version 1)
Quarter: 2014Q3

REPORT INFORMATION
  Report Type: Spontaneous
  Country: US (occurrence: US)
  Receive Date: 20140710
  Receipt Date: 20140710
  Transmission Date: 20150326
  Serious: Yes (Other)
  Sender: FDA-Public Use
  Company Number: US-NAPPMUNDI-USA-2013-0108079

PATIENT
  Sex: Female

DRUGS (2)
  1. BUTRANS [Suspect]
     Active Substance: BUPRENORPHINE
     Indication: OVERDOSE
     Dosage: 5 DOSAGE FORMS, 1 IN 1D
     Route: 062
  2. VICODIN [Suspect]
     Active Substance: ACETAMINOPHEN\HYDROCODONE BITARTRATE
     Indication: OVERDOSE
     Dosage: 400 MG, ( 5MG, 80 TABS 2 TIMES)

REACTIONS (1)
  - Intentional overdose [Unknown]
